FAERS Safety Report 10695350 (Version 5)
Quarter: 2017Q3

REPORT INFORMATION
  Report Type: Spontaneous
  Country: US (occurrence: US)
  Receive Date: 20150107
  Receipt Date: 20170920
  Transmission Date: 20171127
  Serious: No
  Sender: FDA-Public Use
  Company Number: US-JNJFOC-20141211977

PATIENT
  Sex: Male

DRUGS (18)
  1. RISPERDAL [Suspect]
     Active Substance: RISPERIDONE
     Indication: ATTENTION DEFICIT/HYPERACTIVITY DISORDER
     Route: 048
     Dates: start: 20111004, end: 20120427
  2. RISPERDAL [Suspect]
     Active Substance: RISPERIDONE
     Indication: AFFECTIVE DISORDER
     Route: 048
     Dates: start: 2007, end: 2013
  3. RISPERDAL [Suspect]
     Active Substance: RISPERIDONE
     Indication: AFFECTIVE DISORDER
     Route: 048
     Dates: start: 20111004, end: 20120427
  4. RISPERDAL [Suspect]
     Active Substance: RISPERIDONE
     Indication: ATTENTION DEFICIT/HYPERACTIVITY DISORDER
     Route: 048
     Dates: start: 20090720, end: 20110714
  5. RISPERIDONE. [Suspect]
     Active Substance: RISPERIDONE
     Indication: PRODUCT USED FOR UNKNOWN INDICATION
     Route: 048
     Dates: start: 20120717, end: 20130701
  6. RISPERIDONE. [Suspect]
     Active Substance: RISPERIDONE
     Indication: PRODUCT USED FOR UNKNOWN INDICATION
     Route: 048
     Dates: start: 20111004, end: 20120427
  7. RISPERDAL [Suspect]
     Active Substance: RISPERIDONE
     Indication: ATTENTION DEFICIT/HYPERACTIVITY DISORDER
     Route: 048
     Dates: end: 2013
  8. RISPERDAL [Suspect]
     Active Substance: RISPERIDONE
     Indication: AFFECTIVE DISORDER
     Route: 048
     Dates: end: 2013
  9. RISPERDAL [Suspect]
     Active Substance: RISPERIDONE
     Indication: DEPRESSION
     Route: 048
     Dates: start: 2007, end: 2013
  10. RISPERDAL [Suspect]
     Active Substance: RISPERIDONE
     Indication: ATTENTION DEFICIT/HYPERACTIVITY DISORDER
     Dosage: 0.25 MG AND 0.50 MG
     Route: 048
     Dates: start: 20120717, end: 20130701
  11. RISPERDAL [Suspect]
     Active Substance: RISPERIDONE
     Indication: ATTENTION DEFICIT/HYPERACTIVITY DISORDER
     Route: 048
     Dates: start: 2007, end: 2013
  12. RISPERDAL [Suspect]
     Active Substance: RISPERIDONE
     Indication: AFFECTIVE DISORDER
     Route: 048
     Dates: start: 20090720, end: 20110714
  13. RISPERDAL [Suspect]
     Active Substance: RISPERIDONE
     Indication: DEPRESSION
     Route: 048
     Dates: start: 20111004, end: 20120427
  14. RISPERDAL [Suspect]
     Active Substance: RISPERIDONE
     Indication: DEPRESSION
     Route: 048
     Dates: start: 20090720, end: 20110714
  15. RISPERDAL [Suspect]
     Active Substance: RISPERIDONE
     Indication: AFFECTIVE DISORDER
     Dosage: 0.25 MG AND 0.50 MG
     Route: 048
     Dates: start: 20120717, end: 20130701
  16. RISPERDAL [Suspect]
     Active Substance: RISPERIDONE
     Indication: DEPRESSION
     Dosage: 0.25 MG AND 0.50 MG
     Route: 048
     Dates: start: 20120717, end: 20130701
  17. RISPERDAL [Suspect]
     Active Substance: RISPERIDONE
     Indication: DEPRESSION
     Route: 048
     Dates: end: 2013
  18. RISPERIDONE. [Suspect]
     Active Substance: RISPERIDONE
     Indication: PRODUCT USED FOR UNKNOWN INDICATION
     Route: 048
     Dates: start: 20090720, end: 20110714

REACTIONS (7)
  - Off label use [Unknown]
  - Abnormal weight gain [Unknown]
  - Breast discharge [Unknown]
  - Breast pain [Unknown]
  - Product use in unapproved indication [Unknown]
  - Galactorrhoea [Unknown]
  - Gynaecomastia [Unknown]

NARRATIVE: CASE EVENT DATE: 2007
